FAERS Safety Report 9368970 (Version 2)
Quarter: 2013Q2

REPORT INFORMATION
  Report Type: Spontaneous
  Country: GB (occurrence: None)
  Receive Date: 20130621
  Receipt Date: 20130626
  Transmission Date: 20140414
  Serious: Yes (Other)
  Sender: FDA-Public Use
  Company Number: AUR-APL-2013-04983

PATIENT
  Age: 93 Year
  Sex: Female

DRUGS (1)
  1. ALENDRONIC ACID [Suspect]
     Indication: SPINAL FRACTURE
     Route: 048
     Dates: start: 20130516, end: 20130516

REACTIONS (4)
  - Haemoglobin decreased [None]
  - Blood urea increased [None]
  - Oesophageal ulcer [None]
  - Upper gastrointestinal haemorrhage [None]
